FAERS Safety Report 17969579 (Version 1)
Quarter: 2020Q3

REPORT INFORMATION
  Report Type: Spontaneous
  Country: ES (occurrence: ES)
  Receive Date: 20200701
  Receipt Date: 20200701
  Transmission Date: 20201103
  Serious: Yes (Other)
  Sender: FDA-Public Use
  Company Number: NVSC2020ES183036

PATIENT
  Age: 56 Year
  Sex: Male

DRUGS (10)
  1. RAPAMYCIN [Interacting]
     Active Substance: SIROLIMUS
     Indication: LIVER TRANSPLANT REJECTION
     Dosage: UNK
     Route: 065
  2. LABETALOL [Concomitant]
     Active Substance: LABETALOL\LABETALOL HYDROCHLORIDE
     Indication: HYPERTENSION
     Dosage: UNK
     Route: 065
  3. TACROLIMUS. [Interacting]
     Active Substance: TACROLIMUS
     Indication: IMMUNOSUPPRESSANT DRUG THERAPY
  4. NIFEDIPINE. [Concomitant]
     Active Substance: NIFEDIPINE
     Indication: HYPERTENSION
     Dosage: UNK
     Route: 065
  5. TACROLIMUS. [Suspect]
     Active Substance: TACROLIMUS
     Indication: LIVER TRANSPLANT
     Dosage: UNK
     Route: 065
  6. METHYLPREDNISOLONE. [Concomitant]
     Active Substance: METHYLPREDNISOLONE
     Indication: PRODUCT USED FOR UNKNOWN INDICATION
     Dosage: UNK
     Route: 065
  7. SIMVASTATIN. [Interacting]
     Active Substance: SIMVASTATIN
     Indication: BLOOD CHOLESTEROL INCREASED
     Dosage: UNK
     Route: 065
  8. MYCOPHENOLATE MOFETIL. [Interacting]
     Active Substance: MYCOPHENOLATE MOFETIL
     Indication: LIVER TRANSPLANT
     Dosage: UNK
     Route: 065
     Dates: end: 201707
  9. MYCOPHENOLATE MOFETIL. [Interacting]
     Active Substance: MYCOPHENOLATE MOFETIL
     Indication: IMMUNOSUPPRESSANT DRUG THERAPY
  10. SIMVASTATIN. [Interacting]
     Active Substance: SIMVASTATIN
     Indication: BLOOD TRIGLYCERIDES INCREASED

REACTIONS (5)
  - Liver transplant rejection [Unknown]
  - Acute kidney injury [Unknown]
  - Dyslipidaemia [Unknown]
  - Drug interaction [Unknown]
  - Rhabdomyolysis [Unknown]
